FAERS Safety Report 8209155-4 (Version None)
Quarter: 2012Q1

REPORT INFORMATION
  Report Type: 
  Country: None (occurrence: None)
  Receive Date: 20120314
  Receipt Date: 20101119
  Transmission Date: 20120608
  Serious: Yes (Other)
  Sender: FDA-Public Use
  Company Number: US-BAYER-201039102NA

PATIENT
  Age: 10 Year
  Sex: Female
  Weight: 40 kg

DRUGS (2)
  1. MAGNEVIST [Suspect]
     Indication: MASS
  2. MAGNEVIST [Suspect]
     Indication: NUCLEAR MAGNETIC RESONANCE IMAGING
     Dates: start: 20101027, end: 20101027

REACTIONS (2)
  - THROAT TIGHTNESS [None]
  - DYSPHAGIA [None]
